FAERS Safety Report 25518674 (Version 2)
Quarter: 2025Q3

REPORT INFORMATION
  Report Type: Report from Study
  Country: US (occurrence: US)
  Receive Date: 20250704
  Receipt Date: 20250714
  Transmission Date: 20251021
  Serious: Yes (Other)
  Sender: AUROBINDO
  Company Number: US-MLMSERVICE-20250611-PI540772-00295-2

PATIENT
  Age: 31 Year
  Sex: Male

DRUGS (20)
  1. DIVALPROEX SODIUM [Interacting]
     Active Substance: DIVALPROEX SODIUM
     Indication: Aggression
     Dosage: 625 MILLIGRAM, TWO TIMES A DAY
     Route: 065
  2. DIVALPROEX SODIUM [Interacting]
     Active Substance: DIVALPROEX SODIUM
     Indication: Euphoric mood
  3. CLONAZEPAM [Interacting]
     Active Substance: CLONAZEPAM
     Indication: Anxiety
     Dosage: 0.25 MILLIGRAM, ONCE A DAY
     Route: 065
  4. CLONAZEPAM [Interacting]
     Active Substance: CLONAZEPAM
     Dosage: 0.75 MILLIGRAM, ONCE A DAY
     Route: 065
  5. CLONAZEPAM [Interacting]
     Active Substance: CLONAZEPAM
     Dosage: 0.5 MILLIGRAM, TWO TIMES A DAY
     Route: 065
  6. CLONIDINE [Interacting]
     Active Substance: CLONIDINE
     Indication: Anxiety
     Dosage: 0.1 MILLIGRAM, ONCE A DAY
     Route: 065
  7. CLONIDINE [Interacting]
     Active Substance: CLONIDINE
     Dosage: 0.05 MILLIGRAM, 3 TIMES A DAY
     Route: 065
  8. MODAFINIL [Interacting]
     Active Substance: MODAFINIL
     Indication: Somnolence
     Dosage: 100 MILLIGRAM, ONCE A DAY
     Route: 065
  9. SERTRALINE [Interacting]
     Active Substance: SERTRALINE HYDROCHLORIDE
     Indication: Anxiety
     Route: 065
  10. SERTRALINE [Interacting]
     Active Substance: SERTRALINE HYDROCHLORIDE
     Route: 065
  11. SERTRALINE [Interacting]
     Active Substance: SERTRALINE HYDROCHLORIDE
     Route: 065
  12. RISPERIDONE [Interacting]
     Active Substance: RISPERIDONE
     Indication: Delusion
     Dosage: 0.5 MILLIGRAM, TWO TIMES A DAY
     Route: 065
  13. RISPERIDONE [Interacting]
     Active Substance: RISPERIDONE
     Dosage: 1.5 MILLIGRAM, ONCE A DAY
     Route: 065
  14. RISPERIDONE [Interacting]
     Active Substance: RISPERIDONE
     Dosage: 1 MILLIGRAM, TWO TIMES A DAY
     Route: 065
  15. RISPERIDONE [Interacting]
     Active Substance: RISPERIDONE
     Route: 065
  16. LITHIUM [Concomitant]
     Active Substance: LITHIUM
     Indication: Aggression
     Dosage: 750 MILLIGRAM, ONCE A DAY
     Route: 065
  17. LITHIUM [Concomitant]
     Active Substance: LITHIUM
     Indication: Euphoric mood
     Dosage: 600 MILLIGRAM, ONCE A DAY
     Route: 065
  18. LITHIUM [Concomitant]
     Active Substance: LITHIUM
     Dosage: 500 MILLIGRAM, ONCE A DAY
     Route: 065
  19. VALPROIC ACID [Concomitant]
     Active Substance: VALPROIC ACID
     Indication: Aggression
     Dosage: 625 MILLIGRAM, TWO TIMES A DAY
     Route: 065
  20. VALPROIC ACID [Concomitant]
     Active Substance: VALPROIC ACID
     Indication: Euphoric mood
     Dosage: 500 MILLIGRAM, TWO TIMES A DAY
     Route: 065

REACTIONS (4)
  - Affective disorder [Recovering/Resolving]
  - Behaviour disorder [Recovering/Resolving]
  - Condition aggravated [Recovering/Resolving]
  - Drug interaction [Recovering/Resolving]
